FAERS Safety Report 8387377-X (Version None)
Quarter: 2012Q2

REPORT INFORMATION
  Report Type: 
  Country: None (occurrence: None)
  Receive Date: 20120525
  Receipt Date: 20120522
  Transmission Date: 20120825
  Serious: Yes (Hospitalization)
  Sender: FDA-Public Use
  Company Number: NL-ROCHE-785141

PATIENT
  Sex: Female
  Weight: 60 kg

DRUGS (24)
  1. PREDNISONE TAB [Suspect]
     Dosage: DATE OF LAST DOSE PRIOR TO SAE WAS 20 AUG 2011
     Route: 048
  2. DOXORUBICIN HCL [Suspect]
     Indication: DIFFUSE LARGE B-CELL LYMPHOMA
     Dosage: LAST DOSE PRIOR TO SAE: 24 MAY 2011
     Route: 042
  3. VINCRISTINE [Suspect]
     Dosage: DATE OF LAST DOSE PRIOR TO SAE WAS 06 AUG 2011
     Route: 042
  4. NYSTATIN [Concomitant]
     Indication: MUCOSAL INFLAMMATION
     Route: 048
     Dates: start: 20110501, end: 20110603
  5. PREDNISONE TAB [Suspect]
     Indication: DIFFUSE LARGE B-CELL LYMPHOMA
     Dosage: LAST DOSE PRIOR TO SAE: 24 MAY 2011.
     Route: 048
  6. FILGRASTIM [Suspect]
     Indication: DIFFUSE LARGE B-CELL LYMPHOMA
     Route: 058
  7. ALLOPURINOL [Concomitant]
     Dosage: DOSE:1DD, DATE LAST DOSE PRIOR TO SAE:23 AUG 2011
  8. MABTHERA [Suspect]
     Indication: DIFFUSE LARGE B-CELL LYMPHOMA
     Dosage: LAST DOSE PRIOR TO SAE: 24 MAY 2011
     Route: 042
  9. DOXORUBICIN HCL [Suspect]
     Dosage: DATE OF LAST DOSE PRIOR TO SAE WAS 06 AUG 2011
     Route: 042
  10. FILGRASTIM [Suspect]
     Dosage: DATE OF LAST DOSE PRIOR TO SAE WAS 07 AUG 2011
     Route: 058
  11. ALLOPURINOL [Concomitant]
     Dates: start: 20110510, end: 20110603
  12. PANTOPRAZOLE [Concomitant]
     Indication: PEPTIC ULCER
     Dates: start: 20110510, end: 20110603
  13. PANTOPRAZOLE [Concomitant]
     Dosage: DOSE:1DD,DATE LAST DOSE PRIOR TO SAE:23 AUG 2011
  14. CYCLOPHOSPHAMIDE [Suspect]
     Indication: DIFFUSE LARGE B-CELL LYMPHOMA
     Dosage: LAST DOSE PRIOR TO SAE: 24 MAY 2011.
     Route: 042
  15. CYCLOPHOSPHAMIDE [Suspect]
     Dosage: DATE OF LAST DOSE PRIOR TO SAE WAS 06 AUG 2011
     Route: 042
  16. VINCRISTINE [Suspect]
     Indication: DIFFUSE LARGE B-CELL LYMPHOMA
     Dosage: LAST DOSE PRIOR TO SAE: 24 MAY 2011
     Route: 042
  17. NAPROXEN [Concomitant]
     Indication: PAIN
  18. COTRIM [Concomitant]
     Indication: PROPHYLAXIS
     Dosage: DOSE:1DD, DATE LAST DOSE PRIOR TO SAE:23 AUG 2011
     Route: 048
     Dates: start: 20110510, end: 20110603
  19. LACTULOSE [Concomitant]
     Indication: CONSTIPATION
     Dosage: DOSE:3DD, DATE LAST DOSE PRIOR TO SAE:23 AUG 2011
  20. NAPROXEN [Concomitant]
     Dosage: DOSE:2DD, DATE LAST DOSE PRIOR TO SAE:23 AUG 2011
  21. NYSTATIN [Concomitant]
     Route: 048
  22. VALACICLOVIR [Concomitant]
     Dosage: DOSE:2DD, DATE LAST DOSE PRIOR TO SAE:23 AUG 2011
     Route: 048
  23. MABTHERA [Suspect]
     Dosage: DATE OF LAST DOSE PRIOR TO SAE WAS 06 AUG 2011
     Route: 042
  24. VALACICLOVIR [Concomitant]
     Indication: PROPHYLAXIS
     Route: 048

REACTIONS (1)
  - CONSTIPATION [None]
